FAERS Safety Report 21967972 (Version 1)
Quarter: 2023Q1

REPORT INFORMATION
  Report Type: Spontaneous
  Country: US (occurrence: US)
  Receive Date: 20230208
  Receipt Date: 20230208
  Transmission Date: 20230418
  Serious: Yes (Other)
  Sender: FDA-Public Use
  Company Number: US-AMGEN-USASP2022228569

PATIENT
  Sex: Female

DRUGS (1)
  1. OTEZLA [Suspect]
     Active Substance: APREMILAST
     Indication: Psoriasis
     Dosage: 30 MILLIGRAM, BID
     Route: 048

REACTIONS (5)
  - Intracranial pressure increased [Unknown]
  - Hip arthroplasty [Unknown]
  - Osteoarthritis [Unknown]
  - Product administration interrupted [Unknown]
  - Abdominal discomfort [Unknown]
